FAERS Safety Report 15935414 (Version 1)
Quarter: 2019Q1

REPORT INFORMATION
  Report Type: Spontaneous
  Country: CN (occurrence: CN)
  Receive Date: 20190207
  Receipt Date: 20190207
  Transmission Date: 20190417
  Serious: Yes (Other)
  Sender: FDA-Public Use
  Company Number: CN-BAXTER-2019BAX002473

PATIENT
  Age: 56 Year
  Sex: Female
  Weight: 60 kg

DRUGS (2)
  1. 20% MANNITOL INJECTION [Suspect]
     Active Substance: MANNITOL
     Indication: INTRACRANIAL PRESSURE INCREASED
     Route: 041
     Dates: start: 20181101, end: 20181112
  2. 20% MANNITOL INJECTION [Suspect]
     Active Substance: MANNITOL
     Dosage: DOSE REDUCED BY HALF
     Route: 041
     Dates: start: 20181113

REACTIONS (3)
  - Blood urea increased [Recovered/Resolved]
  - Acute kidney injury [Recovered/Resolved]
  - Blood potassium increased [Unknown]

NARRATIVE: CASE EVENT DATE: 20181113
